FAERS Safety Report 9893960 (Version 10)
Quarter: 2016Q4

REPORT INFORMATION
  Report Type: Report from Study
  Country: US (occurrence: US)
  Receive Date: 20140213
  Receipt Date: 20161101
  Transmission Date: 20170207
  Serious: Yes (Life-Threatening, Hospitalization, Other)
  Sender: FDA-Public Use
  Company Number: US-SA-2014SA014103

PATIENT
  Age: 63 Year
  Sex: Male

DRUGS (6)
  1. KLONOPIN [Concomitant]
     Active Substance: CLONAZEPAM
  2. AUBAGIO [Suspect]
     Active Substance: TERIFLUNOMIDE
     Indication: MULTIPLE SCLEROSIS
     Route: 048
     Dates: start: 20131020
  3. ANALGESICS [Concomitant]
     Active Substance: UNSPECIFIED INGREDIENT
  4. AUBAGIO [Suspect]
     Active Substance: TERIFLUNOMIDE
     Indication: MULTIPLE SCLEROSIS
     Route: 048
     Dates: start: 20131020
  5. TRILEPTAL [Concomitant]
     Active Substance: OXCARBAZEPINE
  6. CARDURA [Concomitant]
     Active Substance: DOXAZOSIN MESYLATE
     Route: 048

REACTIONS (18)
  - Cerebral haemorrhage [Recovered/Resolved]
  - Meningioma benign [Recovered/Resolved]
  - Retinal detachment [Not Recovered/Not Resolved]
  - Pain in jaw [Unknown]
  - Retinal scar [Not Recovered/Not Resolved]
  - Thrombosis [Unknown]
  - Diarrhoea [Not Recovered/Not Resolved]
  - Trigeminal neuralgia [Not Recovered/Not Resolved]
  - Memory impairment [Not Recovered/Not Resolved]
  - Cataract [Not Recovered/Not Resolved]
  - Depression [Not Recovered/Not Resolved]
  - Coagulopathy [Recovering/Resolving]
  - Seizure [Recovering/Resolving]
  - Feeding disorder [Recovered/Resolved]
  - Blood pressure increased [Not Recovered/Not Resolved]
  - Platelet count decreased [Recovering/Resolving]
  - Electric shock [Not Recovered/Not Resolved]
  - Malignant melanoma [Not Recovered/Not Resolved]

NARRATIVE: CASE EVENT DATE: 201310
